FAERS Safety Report 23643032 (Version 2)
Quarter: 2024Q1

REPORT INFORMATION
  Report Type: Spontaneous
  Country: US (occurrence: US)
  Receive Date: 20240318
  Receipt Date: 20240320
  Transmission Date: 20240410
  Serious: No
  Sender: FDA-Public Use
  Company Number: US-PFIZER INC-202400065948

PATIENT
  Age: 43 Year
  Sex: Female
  Weight: 81.65 kg

DRUGS (2)
  1. NURTEC ODT [Suspect]
     Active Substance: RIMEGEPANT SULFATE
     Indication: Migraine
     Dosage: 75 MG, AS NEEDED; MAXIMUM 75MG IN 24 HOURS
     Route: 048
     Dates: start: 20240126, end: 20240314
  2. LAMOTRIGINE [Concomitant]
     Active Substance: LAMOTRIGINE
     Indication: Seizure
     Dosage: 200 MG, 2X/DAY
     Route: 048
     Dates: start: 202308

REACTIONS (2)
  - Migraine [Unknown]
  - Rebound effect [Unknown]

NARRATIVE: CASE EVENT DATE: 20240304
